FAERS Safety Report 13701494 (Version 1)
Quarter: 2017Q2

REPORT INFORMATION
  Report Type: Spontaneous
  Country: US (occurrence: US)
  Receive Date: 20170628
  Receipt Date: 20170628
  Transmission Date: 20170830
  Serious: Yes (Disabling)
  Sender: FDA-Public Use
  Company Number: None

PATIENT
  Age: 40 Year
  Sex: Female
  Weight: 85.05 kg

DRUGS (12)
  1. MSM [Concomitant]
     Active Substance: DIMETHYL SULFONE
  2. GREEN TEA EXTRACT [Concomitant]
  3. MOBIC [Concomitant]
     Active Substance: MELOXICAM
  4. PROLIA [Suspect]
     Active Substance: DENOSUMAB
     Indication: BONE DISORDER
     Dosage: ?          OTHER STRENGTH:MG;QUANTITY:1 INJECTION(S);OTHER FREQUENCY:EVERY 6 MONTHS;OTHER ROUTE:IN-OFFICE INJECTION?
  5. FEMARA [Concomitant]
     Active Substance: LETROZOLE
  6. FLAXSEED [Concomitant]
     Active Substance: FLAX SEED
  7. VITAMIN 6 [Concomitant]
  8. PROLIA [Suspect]
     Active Substance: DENOSUMAB
     Indication: CHEMOTHERAPY
     Dosage: ?          OTHER STRENGTH:MG;QUANTITY:1 INJECTION(S);OTHER FREQUENCY:EVERY 6 MONTHS;OTHER ROUTE:IN-OFFICE INJECTION?
  9. PROBIOTIC [Concomitant]
     Active Substance: PROBIOTICS NOS
  10. TAURINE [Concomitant]
     Active Substance: TAURINE
  11. GLUCOSAMINE CHONDROTIN [Concomitant]
     Active Substance: CHONDROITIN SULFATE (BOVINE)\GLUCOSAMINE SULFATE
  12. MELATONIN [Concomitant]
     Active Substance: MELATONIN

REACTIONS (12)
  - Asthenia [None]
  - Fatigue [None]
  - Malaise [None]
  - Arthralgia [None]
  - Pyrexia [None]
  - Dizziness [None]
  - Respiratory tract infection [None]
  - Chills [None]
  - Musculoskeletal pain [None]
  - Immune system disorder [None]
  - Influenza like illness [None]
  - Loss of personal independence in daily activities [None]

NARRATIVE: CASE EVENT DATE: 20160511
